APPROVED DRUG PRODUCT: BUPRENORPHINE
Active Ingredient: BUPRENORPHINE
Strength: 5MCG/HR
Dosage Form/Route: FILM, EXTENDED RELEASE;TRANSDERMAL
Application: A210272 | Product #001 | TE Code: AB
Applicant: DIFGEN PHARMACEUTICALS LLC
Approved: Sep 23, 2021 | RLD: No | RS: No | Type: RX